FAERS Safety Report 7401194-6 (Version None)
Quarter: 2011Q1

REPORT INFORMATION
  Report Type: 
  Country: None (occurrence: None)
  Receive Date: 20110329
  Receipt Date: 20110315
  Transmission Date: 20110831
  Serious: Yes (Death)
  Sender: FDA-Public Use
  Company Number: FK201100504

PATIENT
  Age: 11 Year
  Sex: Male

DRUGS (9)
  1. CYCLOPHOSPHAMIDE [Suspect]
     Indication: CONGENITAL APLASTIC ANAEMIA
     Dosage: 10 MG/KG, FOR 4 DAYS,
  2. FLUDARABINE (FLUDARABINE) [Suspect]
     Indication: CONGENITAL APLASTIC ANAEMIA
     Dosage: 25 MG/M2, FOR 4 DAYS
  3. VINCRISTINE [Concomitant]
  4. ASPARAGINASE (ASPARAGINASE) [Concomitant]
  5. ANTITHYMOCYTE GLOBULIN (ANTITHYMOCYTE IMMUNOGLOBYLIN) [Concomitant]
  6. PREDNISOLONE [Concomitant]
  7. METHOTREXATE [Suspect]
     Indication: CONGENITAL APLASTIC ANAEMIA
  8. CYTARABINE [Suspect]
     Indication: CONGENITAL APLASTIC ANAEMIA
     Dosage: 300 MG/M2
  9. VINDESINE (VINDESINE) [Concomitant]

REACTIONS (15)
  - HYPERGLYCAEMIA [None]
  - GENERAL PHYSICAL HEALTH DETERIORATION [None]
  - HYPOPROTEINAEMIA [None]
  - ABDOMINAL PAIN [None]
  - COUGH [None]
  - PLEURAL EFFUSION [None]
  - MELAENA [None]
  - TOXICITY TO VARIOUS AGENTS [None]
  - PRECURSOR T-LYMPHOBLASTIC LYMPHOMA/LEUKAEMIA [None]
  - PYREXIA [None]
  - DRUG INEFFECTIVE [None]
  - ILEUS PARALYTIC [None]
  - CARDIO-RESPIRATORY ARREST [None]
  - SKIN EROSION [None]
  - SUDDEN CARDIAC DEATH [None]
